FAERS Safety Report 22260560 (Version 1)
Quarter: 2023Q2

REPORT INFORMATION
  Report Type: Spontaneous
  Country: IT (occurrence: IT)
  Receive Date: 20230427
  Receipt Date: 20230427
  Transmission Date: 20230722
  Serious: Yes (Other)
  Sender: FDA-Public Use
  Company Number: IT-002147023-NVSC2023IT081111

PATIENT
  Sex: Male

DRUGS (1)
  1. IMATINIB [Suspect]
     Active Substance: IMATINIB
     Indication: Soft tissue sarcoma
     Dosage: UNK
     Route: 065

REACTIONS (3)
  - Transformation to acute myeloid leukaemia [Unknown]
  - Drug resistance [Unknown]
  - Off label use [Unknown]
